FAERS Safety Report 7247539-1 (Version None)
Quarter: 2011Q1

REPORT INFORMATION
  Report Type: 
  Country: None (occurrence: None)
  Receive Date: 20110127
  Receipt Date: 20110114
  Transmission Date: 20110831
  Serious: Yes (Other)
  Sender: FDA-Public Use
  Company Number: PHHY2010CH86027

PATIENT
  Age: 54 Year
  Weight: 82 kg

DRUGS (8)
  1. PACLITAXEL [Suspect]
     Indication: SQUAMOUS CELL CARCINOMA
     Dosage: 160 MG CYCLIC
     Route: 042
     Dates: start: 20100512
  2. DEXAMETHASONE [Concomitant]
  3. TAVEGYL [Concomitant]
  4. CARBOPLATIN [Suspect]
     Dosage: 670 MG CYCLIC
     Route: 042
     Dates: start: 20100519
  5. CARBOPLATIN [Suspect]
     Indication: SQUAMOUS CELL CARCINOMA
     Dosage: 670 MG CYCLIC
     Route: 042
     Dates: start: 20100512
  6. CARBOPLATIN [Suspect]
     Dosage: 670 MG CYCLIC
     Route: 042
     Dates: start: 20100602
  7. NAVOBAN [Concomitant]
  8. ZANTAC [Concomitant]

REACTIONS (1)
  - PRIAPISM [None]
